FAERS Safety Report 4937456-1 (Version None)
Quarter: 2006Q1

REPORT INFORMATION
  Report Type: 
  Country: None (occurrence: None)
  Receive Date: 20060302
  Receipt Date: 20060209
  Transmission Date: 20060701
  Serious: Yes (Death, Hospitalization)
  Sender: FDA-Public Use
  Company Number: JP200602001999

PATIENT
  Sex: Female

DRUGS (1)
  1. GEMZAR [Suspect]
     Indication: PANCREATIC CARCINOMA
     Dosage: 1200 MG, OTHER, INTRAVENOUS
     Route: 042
     Dates: start: 20060111

REACTIONS (9)
  - BLOOD PRESSURE DECREASED [None]
  - CONDITION AGGRAVATED [None]
  - COUGH [None]
  - NASOPHARYNGITIS [None]
  - NAUSEA [None]
  - NEISSERIA INFECTION [None]
  - SEPSIS [None]
  - STRIDOR [None]
  - WHITE BLOOD CELL COUNT DECREASED [None]
